FAERS Safety Report 12437655 (Version 4)
Quarter: 2016Q3

REPORT INFORMATION
  Report Type: Report from Study
  Country: US (occurrence: US)
  Receive Date: 20160606
  Receipt Date: 20160711
  Transmission Date: 20161109
  Serious: Yes (Hospitalization)
  Sender: FDA-Public Use
  Company Number: US-JNJFOC-20160510278

PATIENT
  Age: 75 Year
  Sex: Male

DRUGS (9)
  1. IMBRUVICA [Suspect]
     Active Substance: IBRUTINIB
     Indication: THERAPY NAIVE
     Route: 065
     Dates: start: 20160407
  2. ASPIRIN. [Concomitant]
     Active Substance: ASPIRIN
     Indication: PROPHYLAXIS
     Route: 048
     Dates: start: 2001
  3. IMBRUVICA [Suspect]
     Active Substance: IBRUTINIB
     Indication: B-CELL SMALL LYMPHOCYTIC LYMPHOMA
     Route: 065
     Dates: start: 20160407
  4. JALYN [Concomitant]
     Active Substance: DUTASTERIDE\TAMSULOSIN HYDROCHLORIDE
     Indication: PROSTATIC DISORDER
     Dosage: 1 TAB, QD
     Route: 048
     Dates: start: 2014
  5. ATORVASTATIN [Concomitant]
     Active Substance: ATORVASTATIN
     Indication: ANEURYSM
     Route: 048
     Dates: start: 2001
  6. IMBRUVICA [Suspect]
     Active Substance: IBRUTINIB
     Indication: CHRONIC LYMPHOCYTIC LEUKAEMIA
     Route: 065
     Dates: start: 20160407
  7. FLUDROCORTISONE [Suspect]
     Active Substance: FLUDROCORTISONE
     Indication: PRODUCT USED FOR UNKNOWN INDICATION
  8. ZANTAC [Concomitant]
     Active Substance: RANITIDINE HYDROCHLORIDE
     Indication: GASTROOESOPHAGEAL REFLUX DISEASE
     Dosage: 1 TAB, QD
     Route: 048
     Dates: start: 2015
  9. CELEBREX [Concomitant]
     Active Substance: CELECOXIB
     Indication: PAIN
     Dosage: PRN
     Route: 048
     Dates: start: 2012

REACTIONS (6)
  - Blood potassium abnormal [Recovered/Resolved]
  - Palpitations [Not Recovered/Not Resolved]
  - Heart rate increased [Unknown]
  - Non-cardiac chest pain [Recovered/Resolved]
  - Rash [Not Recovered/Not Resolved]
  - Fatigue [Not Recovered/Not Resolved]

NARRATIVE: CASE EVENT DATE: 2016
